FAERS Safety Report 4689534-2 (Version None)
Quarter: 2005Q2

REPORT INFORMATION
  Report Type: 
  Country: None (occurrence: None)
  Receive Date: 20050614
  Receipt Date: 19990201
  Transmission Date: 20051028
  Serious: Yes (Hospitalization)
  Sender: FDA-Public Use
  Company Number: US-BOEHRINGER INGELHEIM PHARMACEUTICALS, INC.-1999-BP-00124

PATIENT
  Age: 7 Year
  Sex: Male
  Weight: 21 kg

DRUGS (6)
  1. VIRAMUNE [Suspect]
     Indication: ACQUIRED IMMUNODEFICIENCY SYNDROME
     Route: 048
     Dates: start: 19971218, end: 19981123
  2. STAVUDINE [Suspect]
     Indication: HIV INFECTION
     Route: 048
     Dates: start: 19971218, end: 19981123
  3. RITONAVIR [Suspect]
     Indication: HIV INFECTION
     Route: 048
     Dates: start: 19971218, end: 19981123
  4. FLOVENT [Concomitant]
  5. ALBUTEROL [Concomitant]
     Route: 055
  6. VANCENASE [Concomitant]

REACTIONS (4)
  - ABDOMINAL TENDERNESS [None]
  - BLOOD AMYLASE INCREASED [None]
  - LIPASE INCREASED [None]
  - PANCREATITIS [None]
